FAERS Safety Report 6204355-7 (Version None)
Quarter: 2009Q2

REPORT INFORMATION
  Report Type: 
  Country: None (occurrence: None)
  Receive Date: 20090527
  Receipt Date: 20090427
  Transmission Date: 20091009
  Serious: No
  Sender: FDA-Public Use
  Company Number: US-JNJFOC-20090406795

PATIENT
  Sex: Female

DRUGS (5)
  1. INVEGA [Suspect]
     Route: 048
  2. INVEGA [Suspect]
     Indication: BIPOLAR DISORDER
     Route: 048
  3. DIVALPROEX SODIUM [Concomitant]
     Indication: EPILEPSY
  4. EXELON [Concomitant]
     Indication: MEMORY IMPAIRMENT
     Route: 062
  5. LAMOTRIGINE [Concomitant]
     Indication: EPILEPSY
     Route: 048

REACTIONS (1)
  - INCORRECT DOSE ADMINISTERED [None]
